FAERS Safety Report 5755910-X (Version None)
Quarter: 2008Q2

REPORT INFORMATION
  Report Type: 
  Country: None (occurrence: None)
  Receive Date: 20080602
  Receipt Date: 20080520
  Transmission Date: 20081010
  Serious: Yes (Other)
  Sender: FDA-Public Use
  Company Number: ZA-ELI_LILLY_AND_COMPANY-ZA200805001471

PATIENT
  Age: 27 Year
  Sex: Female

DRUGS (7)
  1. CYMBALTA [Suspect]
     Indication: MAJOR DEPRESSION
     Dosage: 30 MG, DAILY (1/D)
     Route: 048
     Dates: start: 20080421, end: 20080430
  2. TEGRETOL [Concomitant]
     Indication: AFFECTIVE DISORDER
     Dosage: 200 MG, 2/D
     Route: 048
     Dates: start: 20080401
  3. LITHIUM CARBONATE [Concomitant]
     Indication: AFFECTIVE DISORDER
     Dosage: 750 MG, DAILY (1/D)
     Route: 048
  4. LAMOTRIGINE [Concomitant]
     Indication: MYOCLONIC EPILEPSY
     Dosage: 200 MG, DAILY (1/D)
     Route: 048
  5. MIDAZOLAM HCL [Concomitant]
     Indication: RESTLESS LEGS SYNDROME
     Dosage: 15 MG, EACH EVENING
     Route: 048
  6. PROHEXAL [Concomitant]
     Indication: MAJOR DEPRESSION
     Dosage: 20 MG, DAILY (1/D)
     Route: 048
  7. FLUOXETINE HCL [Concomitant]
     Indication: MAJOR DEPRESSION
     Dosage: UNK, UNKNOWN
     Route: 065

REACTIONS (1)
  - HYPERTENSION [None]
